FAERS Safety Report 25229361 (Version 1)
Quarter: 2025Q2

REPORT INFORMATION
  Report Type: Spontaneous
  Country: US (occurrence: US)
  Receive Date: 20250423
  Receipt Date: 20250423
  Transmission Date: 20250716
  Serious: Yes (Other)
  Sender: SANOFI AVENTIS
  Company Number: US-SA-2025SA115763

PATIENT
  Age: 77 Year
  Sex: Female
  Weight: 71.73 kg

DRUGS (2)
  1. DUPIXENT [Suspect]
     Active Substance: DUPILUMAB
     Indication: Dermatitis atopic
     Dosage: 300 MG, QOW
     Route: 058
     Dates: start: 2016
  2. NYSTATIN [Concomitant]
     Active Substance: NYSTATIN

REACTIONS (4)
  - Haemoptysis [Unknown]
  - Cough [Unknown]
  - Dermatitis atopic [Unknown]
  - Therapeutic response decreased [Unknown]
